FAERS Safety Report 5394789-5 (Version None)
Quarter: 2007Q3

REPORT INFORMATION
  Report Type: 
  Country: None (occurrence: None)
  Receive Date: 20070723
  Receipt Date: 20070711
  Transmission Date: 20080115
  Serious: Yes (Other)
  Sender: FDA-Public Use
  Company Number: US-PFIZER INC-2007058455

PATIENT
  Sex: Female
  Weight: 69.09 kg

DRUGS (2)
  1. RELPAX [Suspect]
     Indication: MIGRAINE
  2. EXCEDRIN (MIGRAINE) [Concomitant]

REACTIONS (7)
  - DRUG INEFFECTIVE [None]
  - GAIT DISTURBANCE [None]
  - HEADACHE [None]
  - MUTISM [None]
  - PHOTOPHOBIA [None]
  - SPEECH DISORDER [None]
  - VOMITING [None]
